FAERS Safety Report 11279643 (Version 6)
Quarter: 2016Q2

REPORT INFORMATION
  Report Type: Spontaneous
  Country: US (occurrence: US)
  Receive Date: 20150717
  Receipt Date: 20160406
  Transmission Date: 20160815
  Serious: Yes (Hospitalization, Other)
  Sender: FDA-Public Use
  Company Number: US-009507513-1507USA007690

PATIENT
  Sex: Female
  Weight: 48.53 kg

DRUGS (3)
  1. FOSAMAX [Suspect]
     Active Substance: ALENDRONATE SODIUM
     Indication: OSTEOPOROSIS
     Dosage: 70 MG, QW
     Route: 048
     Dates: start: 199801, end: 200805
  2. ALENDRONATE SODIUM. [Suspect]
     Active Substance: ALENDRONATE SODIUM
     Indication: OSTEOPOROSIS
     Dosage: 70 MG, QW
     Route: 048
     Dates: start: 200809, end: 200902
  3. ALENDRONATE SODIUM. [Suspect]
     Active Substance: ALENDRONATE SODIUM
     Indication: OSTEOPOROSIS
     Dosage: 70 MG, QW
     Route: 048
     Dates: start: 20100104, end: 201501

REACTIONS (11)
  - Intramedullary rod insertion [Unknown]
  - Phlebectomy [Unknown]
  - Dental implantation [Unknown]
  - Open reduction of fracture [Unknown]
  - Osteoarthritis [Unknown]
  - Electrocardiogram abnormal [Unknown]
  - Femur fracture [Recovering/Resolving]
  - Femur fracture [Unknown]
  - Patella fracture [Unknown]
  - Fall [Unknown]
  - Limb injury [Unknown]

NARRATIVE: CASE EVENT DATE: 2005
